FAERS Safety Report 14145342 (Version 1)
Quarter: 2017Q4

REPORT INFORMATION
  Report Type: Spontaneous
  Country: US (occurrence: US)
  Receive Date: 20171031
  Receipt Date: 20171031
  Transmission Date: 20180321
  Serious: No
  Sender: FDA-Public Use
  Company Number: US-TARO-2017TAR00691

PATIENT
  Age: 14 Year
  Sex: Male
  Weight: 65.76 kg

DRUGS (2)
  1. TAZAROTENE CREAM 0.1% [Suspect]
     Active Substance: TAZAROTENE
     Indication: ACNE
     Dosage: PEA SIZE AMOUNT 1X/DAY
     Route: 061
     Dates: start: 20170720, end: 20170801
  2. UNSPECIFIED ANTIBIOTIC [Concomitant]
     Active Substance: UNSPECIFIED INGREDIENT

REACTIONS (1)
  - Acne cystic [Recovering/Resolving]

NARRATIVE: CASE EVENT DATE: 201707
